FAERS Safety Report 6616916-1 (Version None)
Quarter: 2010Q1

REPORT INFORMATION
  Report Type: 
  Country: None (occurrence: None)
  Receive Date: 20100305
  Receipt Date: 20100223
  Transmission Date: 20100710
  Serious: Yes (Other)
  Sender: FDA-Public Use
  Company Number: JP-PFIZER INC-2010024946

PATIENT
  Age: 76 Year
  Sex: Female

DRUGS (5)
  1. SUNITINIB MALATE [Suspect]
     Indication: RENAL CELL CARCINOMA
     Dosage: 37.5 MG, 1X/DAY
     Route: 048
     Dates: start: 20100216
  2. MUCODYNE [Concomitant]
     Route: 048
  3. ASTOMIN [Concomitant]
     Route: 048
  4. DEPAS [Concomitant]
     Route: 048
  5. IMIDAFENACIN [Concomitant]
     Route: 048

REACTIONS (1)
  - DEMENTIA [None]
